FAERS Safety Report 4439706-7 (Version None)
Quarter: 2004Q3

REPORT INFORMATION
  Report Type: 
  Country: None (occurrence: None)
  Receive Date: 20040831
  Receipt Date: 20040819
  Transmission Date: 20050211
  Serious: No
  Sender: FDA-Public Use
  Company Number: 2004PK01408

PATIENT
  Age: 34 Year
  Sex: Male

DRUGS (6)
  1. SEROQUEL [Suspect]
     Indication: SCHIZOPHRENIA, PARANOID TYPE
     Dosage: 300 MG DAILY PO
     Route: 048
     Dates: start: 20030519
  2. CLOPIXOL           /00876701/ [Suspect]
     Indication: SCHIZOPHRENIA, PARANOID TYPE
     Dosage: 125 MG DAILY PO
     Route: 048
     Dates: start: 20030509
  3. TRUXAL [Suspect]
     Indication: SCHIZOPHRENIA, PARANOID TYPE
     Dosage: 300 MG DAILY PO
     Route: 048
     Dates: start: 20030526
  4. ZYPREXA [Suspect]
     Indication: SCHIZOPHRENIA, PARANOID TYPE
     Dosage: 10 MG DAILY PO
     Route: 048
     Dates: start: 20030523, end: 20031005
  5. VALIUM [Concomitant]
  6. AKINETON [Concomitant]

REACTIONS (3)
  - HYPERTENSION [None]
  - PSEUDOPHAEOCHROMOCYTOMA [None]
  - TACHYCARDIA [None]
